FAERS Safety Report 9299830 (Version 1)
Quarter: 2013Q1

REPORT INFORMATION
  Report Type: Spontaneous
  Country: US (occurrence: None)
  Receive Date: 20130107
  Receipt Date: 20130107
  Transmission Date: 20140127
  Serious: Yes (Other)
  Sender: FDA-Public Use
  Company Number: PHEH2012US020236

PATIENT
  Age: 41 Year
  Sex: Female

DRUGS (8)
  1. GILENYA [Suspect]
     Indication: MULTIPLE SCLEROSIS
     Route: 048
     Dates: start: 20120720, end: 20121012
  2. LEVOTHYROXINE (LEVOTHYROXINE) [Concomitant]
  3. NEXIUM (ESOMEPRAZOLE MAGNESIUM) [Concomitant]
  4. SERTRALINE (SERTRALINE) [Concomitant]
  5. MODAFINIL (MODAFINIL) [Concomitant]
  6. GABAPENTIN (GABAPENTIN) [Concomitant]
  7. AMITIZA (LUBIPROSTONE) [Concomitant]
  8. BACLOFEN (BACLOFEN) [Concomitant]

REACTIONS (1)
  - Weight increased [None]
